FAERS Safety Report 14081261 (Version 1)
Quarter: 2017Q4

REPORT INFORMATION
  Report Type: Report from Study
  Country: US (occurrence: US)
  Receive Date: 20171012
  Receipt Date: 20171012
  Transmission Date: 20180321
  Serious: Yes (Hospitalization)
  Sender: FDA-Public Use
  Company Number: US-EISAI MEDICAL RESEARCH-EC-2015-008000

PATIENT
  Age: 72 Year
  Sex: Female

DRUGS (2)
  1. LENVIMA [Suspect]
     Active Substance: LENVATINIB
     Indication: THYROID CANCER
     Route: 048
     Dates: start: 20150618, end: 201506
  2. LENVIMA [Suspect]
     Active Substance: LENVATINIB
     Dosage: 14MG EVERY OTHER DAY FOR 14 DAYS, THEN OFF FOR 7 DAYS, THEN REPEAT.
     Route: 048
     Dates: start: 201506

REACTIONS (11)
  - Burning sensation [Recovering/Resolving]
  - Vomiting [Recovered/Resolved]
  - Transient ischaemic attack [Recovered/Resolved]
  - Hypertension [Not Recovered/Not Resolved]
  - Stomatitis [Unknown]
  - Weight decreased [Unknown]
  - Pain [Not Recovered/Not Resolved]
  - Nervousness [Recovering/Resolving]
  - Dysgeusia [Not Recovered/Not Resolved]
  - Sinusitis [Recovered/Resolved]
  - Decreased appetite [Not Recovered/Not Resolved]

NARRATIVE: CASE EVENT DATE: 201506
